FAERS Safety Report 7284971-4 (Version None)
Quarter: 2011Q1

REPORT INFORMATION
  Report Type: 
  Country: None (occurrence: None)
  Receive Date: 20110210
  Receipt Date: 20110204
  Transmission Date: 20110831
  Serious: Yes (Other)
  Sender: FDA-Public Use
  Company Number: HR-BAXTER-2011BH002738

PATIENT
  Age: 40 Year
  Sex: Male
  Weight: 55 kg

DRUGS (6)
  1. GAMMAGARD LIQUID [Suspect]
     Indication: IMMUNODEFICIENCY
     Route: 042
     Dates: start: 20110127, end: 20110127
  2. FURSEMID [Concomitant]
  3. MEDROL [Concomitant]
     Indication: PREMEDICATION
  4. LANITOP [Concomitant]
  5. TEOLIN [Concomitant]
  6. CONCOR [Concomitant]

REACTIONS (8)
  - CHEST DISCOMFORT [None]
  - CHILLS [None]
  - SUFFOCATION FEELING [None]
  - ANAPHYLACTOID REACTION [None]
  - CYANOSIS [None]
  - GROIN PAIN [None]
  - BACK PAIN [None]
  - PYREXIA [None]
